FAERS Safety Report 6501189-0 (Version None)
Quarter: 2009Q4

REPORT INFORMATION
  Report Type: 
  Country: None (occurrence: None)
  Receive Date: 20091216
  Receipt Date: 20090911
  Transmission Date: 20100525
  Serious: No
  Sender: FDA-Public Use
  Company Number: A0806990A

PATIENT
  Age: 54 Year
  Sex: Female

DRUGS (1)
  1. NICOTINE POLACRILEX [Suspect]
     Dates: start: 20090910, end: 20090910

REACTIONS (3)
  - GLOSSODYNIA [None]
  - MALAISE [None]
  - THROAT IRRITATION [None]
